FAERS Safety Report 22199351 (Version 1)
Quarter: 2023Q2

REPORT INFORMATION
  Report Type: Spontaneous
  Country: GB (occurrence: GB)
  Receive Date: 20230411
  Receipt Date: 20230411
  Transmission Date: 20230721
  Serious: No
  Sender: FDA-Public Use
  Company Number: None

PATIENT
  Sex: Male

DRUGS (2)
  1. QUETIAPINE FUMARATE [Suspect]
     Active Substance: QUETIAPINE FUMARATE
     Indication: Product used for unknown indication
     Dosage: 2 DOSAGE FORM (QUETIAPINE 300 MG TABLET)
     Route: 048
  2. QUETIAPINE FUMARATE [Suspect]
     Active Substance: QUETIAPINE FUMARATE
     Dosage: 300 MILLIGRAM, HS ( QUININE SULFATE)
     Route: 048

REACTIONS (5)
  - Malaise [Unknown]
  - Fall [Unknown]
  - Product dispensing error [Unknown]
  - Wrong product administered [Unknown]
  - Product dose omission issue [Unknown]
